FAERS Safety Report 12104283 (Version 2)
Quarter: 2016Q1

REPORT INFORMATION
  Report Type: Spontaneous
  Country: KP (occurrence: KR)
  Receive Date: 20160223
  Receipt Date: 20160224
  Transmission Date: 20160526
  Serious: Yes (Hospitalization)
  Sender: FDA-Public Use
  Company Number: PHHY2016KR021598

PATIENT
  Age: 63 Year
  Sex: Male

DRUGS (15)
  1. CARBIDOPA AND LEVODOPA [Suspect]
     Active Substance: CARBIDOPA\LEVODOPA
     Indication: DEPRESSED LEVEL OF CONSCIOUSNESS
     Route: 065
  2. ROPINIROLE. [Suspect]
     Active Substance: ROPINIROLE
     Dosage: 0.625 MG,
  3. ROPINIROLE. [Suspect]
     Active Substance: ROPINIROLE
     Dosage: 0.75 MG, QD ON 13 DAY OF ADMISSION
     Route: 065
  4. VENLAFAXINE [Suspect]
     Active Substance: VENLAFAXINE HYDROCHLORIDE
     Indication: DEPRESSED LEVEL OF CONSCIOUSNESS
     Dosage: 37.5 MG,
  5. AMANTADINE [Suspect]
     Active Substance: AMANTADINE
     Dosage: 200 MG, QD, AFTER THE EVENT OCCURED
     Route: 065
  6. CARBIDOPA AND LEVODOPA [Suspect]
     Active Substance: CARBIDOPA\LEVODOPA
     Route: 065
  7. AMANTADINE [Suspect]
     Active Substance: AMANTADINE
     Indication: DEPRESSED LEVEL OF CONSCIOUSNESS
     Dosage: 300 MG,
     Route: 065
  8. BROMOCRIPTINE [Suspect]
     Active Substance: BROMOCRIPTINE
     Indication: DEPRESSED LEVEL OF CONSCIOUSNESS
     Dosage: 2.5 MG,
     Route: 065
  9. METHYLPHENIDATE. [Suspect]
     Active Substance: METHYLPHENIDATE
     Dosage: 5 MG, QD (AFTER THE EVENT)
     Route: 065
  10. TIANEPTINE SODIUM [Suspect]
     Active Substance: TIANEPTINE SODIUM
     Indication: DEPRESSED LEVEL OF CONSCIOUSNESS
     Dosage: 37.5 MG,
     Route: 065
  11. DONEPEZIL. [Suspect]
     Active Substance: DONEPEZIL
     Indication: DEPRESSED LEVEL OF CONSCIOUSNESS
     Dosage: 5 MG,
     Route: 065
  12. CARBIDOPA AND LEVODOPA [Suspect]
     Active Substance: CARBIDOPA\LEVODOPA
     Dosage: UNK
     Route: 065
  13. ROPINIROLE. [Suspect]
     Active Substance: ROPINIROLE
     Indication: DEPRESSED LEVEL OF CONSCIOUSNESS
     Dosage: 0.25 MG, QD
     Route: 065
  14. ROPINIROLE. [Suspect]
     Active Substance: ROPINIROLE
     Dosage: 0.5 MG, QD (AFTER THE EVENT)
     Route: 065
  15. METHYLPHENIDATE. [Suspect]
     Active Substance: METHYLPHENIDATE
     Indication: DEPRESSED LEVEL OF CONSCIOUSNESS
     Dosage: 20 MG,
     Route: 065

REACTIONS (1)
  - Serotonin syndrome [Recovered/Resolved]
